FAERS Safety Report 15507260 (Version 1)
Quarter: 2018Q4

REPORT INFORMATION
  Report Type: Spontaneous
  Country: IT (occurrence: IT)
  Receive Date: 20181016
  Receipt Date: 20181016
  Transmission Date: 20190205
  Serious: Yes (Hospitalization, Other)
  Sender: FDA-Public Use
  Company Number: IT-ASTRAZENECA-2018SF35773

PATIENT
  Age: 46 Year
  Sex: Male

DRUGS (3)
  1. ACETYLSALICYLIC ACID [Concomitant]
     Active Substance: ASPIRIN
     Indication: PERIPHERAL ISCHAEMIA
     Dosage: 100 MG
  2. TICAGRELOR. [Suspect]
     Active Substance: TICAGRELOR
     Route: 048
  3. ACETYLSALICYLIC ACID [Concomitant]
     Active Substance: ASPIRIN
     Indication: PERIPHERAL ISCHAEMIA
     Dosage: 100 MG

REACTIONS (1)
  - Thrombotic thrombocytopenic purpura [Recovered/Resolved]
